FAERS Safety Report 10928095 (Version 1)
Quarter: 2015Q1

REPORT INFORMATION
  Report Type: Spontaneous
  Country: US (occurrence: US)
  Receive Date: 20150319
  Receipt Date: 20150319
  Transmission Date: 20150721
  Serious: No
  Sender: FDA-Public Use
  Company Number: US-BIOGENIDEC-2015BI010880

PATIENT
  Sex: Male

DRUGS (1)
  1. TYSABRI [Suspect]
     Active Substance: NATALIZUMAB
     Indication: MULTIPLE SCLEROSIS
     Route: 042
     Dates: start: 20140924

REACTIONS (3)
  - Visual impairment [Recovered/Resolved with Sequelae]
  - Musculoskeletal disorder [Recovered/Resolved with Sequelae]
  - Emotional disorder [Recovered/Resolved with Sequelae]
